FAERS Safety Report 7902929-6 (Version None)
Quarter: 2011Q4

REPORT INFORMATION
  Report Type: 
  Country: None (occurrence: None)
  Receive Date: 20111109
  Receipt Date: 20111102
  Transmission Date: 20120403
  Serious: Yes (Other)
  Sender: FDA-Public Use
  Company Number: ES-JNJFOC-20111102156

PATIENT

DRUGS (1)
  1. STELARA [Suspect]
     Indication: ILL-DEFINED DISORDER

REACTIONS (1)
  - PANCREATIC NEOPLASM [None]
